FAERS Safety Report 16802069 (Version 1)
Quarter: 2019Q3

REPORT INFORMATION
  Report Type: Spontaneous
  Country: US (occurrence: US)
  Receive Date: 20190912
  Receipt Date: 20190912
  Transmission Date: 20191005
  Serious: No
  Sender: FDA-Public Use
  Company Number: US-KOWA-19US001004

PATIENT

DRUGS (2)
  1. LIVALO [Suspect]
     Active Substance: PITAVASTATIN CALCIUM
     Indication: BLOOD CHOLESTEROL INCREASED
     Dosage: 2 UNK, QOD
     Dates: start: 20190401, end: 201904
  2. LISINOPRIL. [Concomitant]
     Active Substance: LISINOPRIL
     Indication: BLOOD PRESSURE MANAGEMENT
     Dosage: 10 UNK, QD
     Dates: start: 2018

REACTIONS (6)
  - Off label use [Unknown]
  - Headache [Recovered/Resolved]
  - Constipation [Recovered/Resolved]
  - Insomnia [Recovered/Resolved]
  - Myalgia [Recovered/Resolved]
  - Fatigue [Recovered/Resolved]

NARRATIVE: CASE EVENT DATE: 201904
